FAERS Safety Report 9433932 (Version 1)
Quarter: 2013Q3

REPORT INFORMATION
  Report Type: Spontaneous
  Country: US (occurrence: US)
  Receive Date: 20130801
  Receipt Date: 20130801
  Transmission Date: 20140515
  Serious: Yes (Hospitalization, Other)
  Sender: FDA-Public Use
  Company Number: US-ROCHE-1001976

PATIENT
  Age: 16 Year
  Sex: Male

DRUGS (4)
  1. ACCUTANE [Suspect]
     Indication: ACNE
     Route: 048
     Dates: start: 20000104
  2. ACCUTANE [Suspect]
     Route: 048
     Dates: start: 20000209
  3. ACCUTANE [Suspect]
     Route: 048
     Dates: start: 20000316
  4. ACCUTANE [Suspect]
     Route: 048
     Dates: start: 20000412, end: 20000930

REACTIONS (11)
  - Crohn^s disease [Unknown]
  - Inflammatory bowel disease [Unknown]
  - Depression [Unknown]
  - Bipolar disorder [Unknown]
  - Blood cholesterol increased [Unknown]
  - Blood triglycerides increased [Unknown]
  - Lip dry [Unknown]
  - Dry skin [Unknown]
  - Epistaxis [Unknown]
  - Eczema [Unknown]
  - Tachyphrenia [Unknown]
